FAERS Safety Report 4544693-7 (Version None)
Quarter: 2004Q4

REPORT INFORMATION
  Report Type: 
  Country: None (occurrence: None)
  Receive Date: 20041230
  Receipt Date: 20041217
  Transmission Date: 20050328
  Serious: Yes (Other)
  Sender: FDA-Public Use
  Company Number: 2004116110

PATIENT
  Sex: Female

DRUGS (5)
  1. EPIRUBICIN HYDROCHLORIDE (EPIRUBICIN HYDROCHLORIDE ) [Suspect]
     Indication: BREAST CANCER
     Dosage: 120 MG
     Dates: start: 20040923, end: 20041125
  2. CYCLOPHOSPHAMIDE [Suspect]
     Indication: BREAST CANCER
     Dosage: 1930 MG
     Dates: start: 20040923, end: 20041125
  3. FILGRASTIM (FILGRASTIM) [Concomitant]
  4. CIPROFLOXACIN [Concomitant]
  5. VALACYCLOVIR HCL [Concomitant]

REACTIONS (1)
  - HEPATOTOXICITY [None]
